FAERS Safety Report 8132916-7 (Version None)
Quarter: 2012Q1

REPORT INFORMATION
  Report Type: 
  Country: None (occurrence: None)
  Receive Date: 20120213
  Receipt Date: 20120209
  Transmission Date: 20120608
  Serious: Yes (Hospitalization)
  Sender: FDA-Public Use
  Company Number: JP-EISAI INC-E2020-10325-SPO-JP

PATIENT
  Age: 80 Year
  Sex: Male
  Weight: 60 kg

DRUGS (1)
  1. ARICEPT [Suspect]
     Route: 048
     Dates: start: 20100101, end: 20120207

REACTIONS (2)
  - HYPERHIDROSIS [None]
  - HYPOTHERMIA [None]
